FAERS Safety Report 9672190 (Version 2)
Quarter: 2013Q4

REPORT INFORMATION
  Report Type: Spontaneous
  Country: US (occurrence: US)
  Receive Date: 20131106
  Receipt Date: 20131122
  Transmission Date: 20140711
  Serious: Yes (Hospitalization, Other)
  Sender: FDA-Public Use
  Company Number: US-BRISTOL-MYERS SQUIBB COMPANY-19696525

PATIENT
  Age: 56 Year
  Sex: Female
  Weight: 76.19 kg

DRUGS (14)
  1. BYDUREON [Suspect]
     Indication: TYPE 2 DIABETES MELLITUS
     Route: 058
  2. HYDROCHLOROTHIAZIDE [Suspect]
     Indication: HYPERTENSION
  3. AMLODIPINE [Concomitant]
  4. INSULIN [Concomitant]
  5. LEVEMIR [Concomitant]
     Dosage: 1DF:400 UNIT NOS
  6. LIPITOR [Concomitant]
  7. GLIPIZIDE [Concomitant]
  8. MAGNESIUM CHLORIDE [Concomitant]
  9. METFORMIN [Concomitant]
  10. METOPROLOL TARTRATE [Concomitant]
  11. OSTEO BI-FLEX [Concomitant]
  12. SPIRONOLACTONE [Concomitant]
  13. VITAMIN B12 [Concomitant]
  14. LISINOPRIL [Concomitant]

REACTIONS (2)
  - Pancreatitis acute [Recovered/Resolved]
  - Medication error [Unknown]
